APPROVED DRUG PRODUCT: MINOXIDIL
Active Ingredient: MINOXIDIL
Strength: 5%
Dosage Form/Route: AEROSOL, FOAM;TOPICAL
Application: A091344 | Product #001
Applicant: PERRIGO PHARMA INTERNATIONAL DAC
Approved: Apr 28, 2011 | RLD: No | RS: No | Type: OTC